FAERS Safety Report 12570565 (Version 1)
Quarter: 2016Q3

REPORT INFORMATION
  Report Type: Spontaneous
  Country: US (occurrence: US)
  Receive Date: 20160719
  Receipt Date: 20160719
  Transmission Date: 20161109
  Serious: Yes (Disabling, Other)
  Sender: FDA-Public Use
  Company Number: US-TEIKOKU PHARMA USA-TPU2016-00483

PATIENT
  Sex: Female
  Weight: 77.18 kg

DRUGS (6)
  1. LIDOCAINE PATCH [Suspect]
     Active Substance: LIDOCAINE
     Indication: PAIN IN EXTREMITY
  2. LIDOCAINE PATCH [Suspect]
     Active Substance: LIDOCAINE
     Indication: BACK PAIN
     Dosage: 1-3 PATCHES FOR 12 HOURS ON THEN 12 HOURS OFF
     Route: 061
     Dates: start: 201602
  3. LIDOCAINE PATCH [Suspect]
     Active Substance: LIDOCAINE
     Indication: ARTHRALGIA
  4. LIDOCAINE PATCH [Suspect]
     Active Substance: LIDOCAINE
     Indication: PAIN IN EXTREMITY
  5. LIDOCAINE PATCH [Suspect]
     Active Substance: LIDOCAINE
     Indication: NECK PAIN
     Dosage: APPLY ONE PATCH EVERY EIGHT HOURS DAILY FOR BACK, NECK, KNEES, LEGS, ARM AND WRIST PAIN
     Route: 061
  6. LIDOCAINE PATCH [Suspect]
     Active Substance: LIDOCAINE
     Indication: ARTHRALGIA

REACTIONS (6)
  - Cardiac ablation [Unknown]
  - Deafness [Not Recovered/Not Resolved]
  - Inappropriate schedule of drug administration [Not Recovered/Not Resolved]
  - Blindness [Not Recovered/Not Resolved]
  - Dyspnoea [Unknown]
  - Brain operation [Unknown]

NARRATIVE: CASE EVENT DATE: 2016
